FAERS Safety Report 8216282-4 (Version None)
Quarter: 2012Q1

REPORT INFORMATION
  Report Type: 
  Country: None (occurrence: None)
  Receive Date: 20120316
  Receipt Date: 20120306
  Transmission Date: 20120608
  Serious: Yes (Hospitalization)
  Sender: FDA-Public Use
  Company Number: PHHO2011PL02469

PATIENT
  Sex: Male
  Weight: 90.5 kg

DRUGS (2)
  1. PLACEBO [Suspect]
     Indication: RENAL CANCER METASTATIC
     Dosage: UNK
     Route: 048
     Dates: start: 20070425
  2. RAD001 [Suspect]
     Indication: RENAL CANCER METASTATIC
     Dosage: UNK
     Dates: start: 20080218

REACTIONS (1)
  - RENAL FAILURE [None]
